FAERS Safety Report 22235547 (Version 1)
Quarter: 2023Q2

REPORT INFORMATION
  Report Type: Spontaneous
  Country: CN (occurrence: CN)
  Receive Date: 20230420
  Receipt Date: 20230420
  Transmission Date: 20230722
  Serious: Yes (Death, Other)
  Sender: FDA-Public Use
  Company Number: None

PATIENT
  Age: 57 Year
  Sex: Male
  Weight: 62.5 kg

DRUGS (32)
  1. CYCLOPHOSPHAMIDE [Suspect]
     Active Substance: CYCLOPHOSPHAMIDE
     Indication: Allogenic stem cell transplantation
     Dosage: 900 MG, QD
     Route: 041
     Dates: start: 20230404, end: 20230405
  2. CYCLOPHOSPHAMIDE [Suspect]
     Active Substance: CYCLOPHOSPHAMIDE
     Indication: Graft versus host disease
  3. CYCLOPHOSPHAMIDE [Suspect]
     Active Substance: CYCLOPHOSPHAMIDE
     Indication: Surgical preconditioning
  4. CYCLOPHOSPHAMIDE [Suspect]
     Active Substance: CYCLOPHOSPHAMIDE
     Indication: Myelodysplastic syndrome
  5. BENDAMUSTINE HYDROCHLORIDE [Suspect]
     Active Substance: BENDAMUSTINE HYDROCHLORIDE
     Indication: Allogenic stem cell transplantation
     Dosage: 200 MG, QD
     Route: 041
     Dates: start: 20230402, end: 20230402
  6. BENDAMUSTINE HYDROCHLORIDE [Suspect]
     Active Substance: BENDAMUSTINE HYDROCHLORIDE
     Indication: Graft versus host disease
  7. BENDAMUSTINE HYDROCHLORIDE [Suspect]
     Active Substance: BENDAMUSTINE HYDROCHLORIDE
     Indication: Surgical preconditioning
  8. BENDAMUSTINE HYDROCHLORIDE [Suspect]
     Active Substance: BENDAMUSTINE HYDROCHLORIDE
     Indication: Myelodysplastic syndrome
  9. THYMOGLOBULINE [Suspect]
     Active Substance: LAPINE T-LYMPHOCYTE IMMUNE GLOBULIN
     Indication: Allogenic stem cell transplantation
     Dosage: AT 13:30, 125 MG, ONCE EVERY 2 DAYS
     Route: 041
     Dates: start: 20230407, end: 20230408
  10. THYMOGLOBULINE [Suspect]
     Active Substance: LAPINE T-LYMPHOCYTE IMMUNE GLOBULIN
     Indication: Graft versus host disease
  11. THYMOGLOBULINE [Suspect]
     Active Substance: LAPINE T-LYMPHOCYTE IMMUNE GLOBULIN
     Indication: Surgical preconditioning
  12. THYMOGLOBULINE [Suspect]
     Active Substance: LAPINE T-LYMPHOCYTE IMMUNE GLOBULIN
     Indication: Myelodysplastic syndrome
  13. LEVETIRACETAM [Suspect]
     Active Substance: LEVETIRACETAM
     Indication: Allogenic stem cell transplantation
     Dosage: 1000 MG, BID
     Route: 048
     Dates: start: 20230405, end: 20230409
  14. LEVETIRACETAM [Suspect]
     Active Substance: LEVETIRACETAM
     Indication: Graft versus host disease
  15. LEVETIRACETAM [Suspect]
     Active Substance: LEVETIRACETAM
     Indication: Surgical preconditioning
  16. LEVETIRACETAM [Suspect]
     Active Substance: LEVETIRACETAM
     Indication: Myelodysplastic syndrome
  17. DECITABINE [Suspect]
     Active Substance: DECITABINE
     Indication: Allogenic stem cell transplantation
     Dosage: 50 MG, QD
     Route: 041
     Dates: start: 20230402, end: 20230406
  18. DECITABINE [Suspect]
     Active Substance: DECITABINE
     Indication: Graft versus host disease
  19. DECITABINE [Suspect]
     Active Substance: DECITABINE
     Indication: Surgical preconditioning
  20. DECITABINE [Suspect]
     Active Substance: DECITABINE
     Indication: Myelodysplastic syndrome
  21. BUSULFEX [Suspect]
     Active Substance: BUSULFAN
     Indication: Allogenic stem cell transplantation
     Dosage: 60 MG, QD
     Route: 041
     Dates: start: 20230406, end: 20230408
  22. BUSULFEX [Suspect]
     Active Substance: BUSULFAN
     Indication: Graft versus host disease
  23. BUSULFEX [Suspect]
     Active Substance: BUSULFAN
     Indication: Surgical preconditioning
  24. BUSULFEX [Suspect]
     Active Substance: BUSULFAN
     Indication: Myelodysplastic syndrome
  25. CYTARABINE [Suspect]
     Active Substance: CYTARABINE
     Indication: Allogenic stem cell transplantation
     Dosage: 2600 MG, QD
     Route: 041
     Dates: start: 20230402, end: 20230406
  26. CYTARABINE [Suspect]
     Active Substance: CYTARABINE
     Indication: Graft versus host disease
  27. CYTARABINE [Suspect]
     Active Substance: CYTARABINE
     Indication: Surgical preconditioning
  28. CYTARABINE [Suspect]
     Active Substance: CYTARABINE
     Indication: Myelodysplastic syndrome
  29. FLUDARABINE PHOSPHATE [Suspect]
     Active Substance: FLUDARABINE PHOSPHATE
     Indication: Allogenic stem cell transplantation
     Dosage: 50 MG, QD
     Route: 041
     Dates: start: 20230402, end: 20230406
  30. FLUDARABINE PHOSPHATE [Suspect]
     Active Substance: FLUDARABINE PHOSPHATE
     Indication: Graft versus host disease
  31. FLUDARABINE PHOSPHATE [Suspect]
     Active Substance: FLUDARABINE PHOSPHATE
     Indication: Surgical preconditioning
  32. FLUDARABINE PHOSPHATE [Suspect]
     Active Substance: FLUDARABINE PHOSPHATE
     Indication: Myelodysplastic syndrome

REACTIONS (13)
  - Blood pressure decreased [Fatal]
  - Serum sickness [Fatal]
  - Ventricular tachycardia [Fatal]
  - Ventricular fibrillation [Fatal]
  - Oedema peripheral [Fatal]
  - Back pain [Fatal]
  - Headache [Fatal]
  - Neck pain [Fatal]
  - Pain [Fatal]
  - Illness [Fatal]
  - Depressed mood [Fatal]
  - Cardiac arrest [Fatal]
  - Respiratory arrest [Fatal]

NARRATIVE: CASE EVENT DATE: 20230407
